FAERS Safety Report 15404522 (Version 8)
Quarter: 2019Q3

REPORT INFORMATION
  Report Type: Spontaneous
  Country: US (occurrence: US)
  Receive Date: 20180919
  Receipt Date: 20190820
  Transmission Date: 20191004
  Serious: No
  Sender: FDA-Public Use
  Company Number: US-ACTELION-A-NJ2018-178885

PATIENT
  Age: 67 Year
  Sex: Female
  Weight: 63.49 kg

DRUGS (5)
  1. OPSUMIT [Suspect]
     Active Substance: MACITENTAN
     Indication: PULMONARY ARTERIAL HYPERTENSION
     Dosage: 10 MG, QD
     Route: 048
     Dates: start: 20180712
  2. SILDENAFIL. [Concomitant]
     Active Substance: SILDENAFIL
     Dosage: UNK
     Dates: start: 20190418
  3. ADCIRCA [Concomitant]
     Active Substance: TADALAFIL
  4. DILTIAZEM. [Concomitant]
     Active Substance: DILTIAZEM
  5. VELETRI [Suspect]
     Active Substance: EPOPROSTENOL
     Indication: PULMONARY ARTERIAL HYPERTENSION
     Dosage: 30 NG/KG, PER MIN
     Route: 042

REACTIONS (17)
  - Arthralgia [Not Recovered/Not Resolved]
  - Pain in extremity [Not Recovered/Not Resolved]
  - Sinus disorder [Unknown]
  - Catheter site rash [Unknown]
  - Device leakage [Not Recovered/Not Resolved]
  - Catheter site erythema [Unknown]
  - Rash [Unknown]
  - Application site pruritus [Recovered/Resolved]
  - Application site rash [Recovering/Resolving]
  - Ocular hyperaemia [Unknown]
  - Catheter site haemorrhage [Unknown]
  - Pulmonary arterial hypertension [Unknown]
  - Condition aggravated [Unknown]
  - Palpitations [Unknown]
  - Catheter site pruritus [Unknown]
  - Myalgia [Unknown]
  - Device issue [Unknown]

NARRATIVE: CASE EVENT DATE: 20190809
